FAERS Safety Report 7967325-4 (Version None)
Quarter: 2011Q4

REPORT INFORMATION
  Report Type: 
  Country: None (occurrence: None)
  Receive Date: 20111209
  Receipt Date: 20111202
  Transmission Date: 20120403
  Serious: Yes (Hospitalization)
  Sender: FDA-Public Use
  Company Number: US-B.I. PHARMACEUTICALS,INC./RIDGEFIELD-2007-BP-00278BP

PATIENT
  Sex: Male
  Weight: 82 kg

DRUGS (14)
  1. COMTAN [Concomitant]
     Indication: PARKINSON'S DISEASE
  2. ATIVAN [Concomitant]
     Route: 048
  3. FLEXERIL [Concomitant]
     Dosage: 30 MG
     Dates: start: 20020315
  4. PROZAC [Concomitant]
     Indication: DEPRESSION
     Dates: start: 20011213
  5. SINEMET CR [Concomitant]
     Indication: PARKINSON'S DISEASE
     Route: 048
  6. SEROQUEL XR [Concomitant]
     Indication: COMPULSIONS
     Dosage: 50 MG
     Route: 048
  7. SELEGILINE [Concomitant]
     Indication: DEPRESSION
     Dates: start: 20000508
  8. SINEMET [Concomitant]
     Indication: PARKINSON'S DISEASE
  9. PAXIL [Concomitant]
     Indication: DEPRESSION
  10. REQUIP [Concomitant]
     Indication: PARKINSON'S DISEASE
     Dates: start: 20001222
  11. MIRAPEX [Suspect]
     Indication: PARKINSON'S DISEASE
     Route: 048
     Dates: start: 19981102, end: 20020101
  12. DEPAKOTE [Concomitant]
     Indication: DEPRESSION
     Dates: start: 20020301
  13. WELLBUTRIN [Concomitant]
     Indication: DEPRESSION
     Dates: start: 20020101
  14. AMANTADINE HCL [Concomitant]
     Indication: NAUSEA
     Dosage: 200 MG
     Route: 048

REACTIONS (36)
  - MOOD DISORDER DUE TO A GENERAL MEDICAL CONDITION [None]
  - DEPRESSION [None]
  - ROAD TRAFFIC ACCIDENT [None]
  - FEELING OF DESPAIR [None]
  - GAIT DISTURBANCE [None]
  - IMPAIRED WORK ABILITY [None]
  - LIBIDO DECREASED [None]
  - PATHOLOGICAL GAMBLING [None]
  - SELF ESTEEM DECREASED [None]
  - WEIGHT DECREASED [None]
  - FEELING GUILTY [None]
  - FEELINGS OF WORTHLESSNESS [None]
  - ACTIVITIES OF DAILY LIVING IMPAIRED [None]
  - SEXUAL DYSFUNCTION [None]
  - MANIA [None]
  - ANXIETY [None]
  - PARTNER STRESS [None]
  - PAIN [None]
  - IMPULSIVE BEHAVIOUR [None]
  - LIBIDO INCREASED [None]
  - JUDGEMENT IMPAIRED [None]
  - ASTHENIA [None]
  - PARANOIA [None]
  - SOMNOLENCE [None]
  - ADJUSTMENT DISORDER [None]
  - PSYCHIATRIC SYMPTOM [None]
  - ANHEDONIA [None]
  - MOOD SWINGS [None]
  - INSOMNIA [None]
  - GENERAL PHYSICAL HEALTH DETERIORATION [None]
  - DISTURBANCE IN SOCIAL BEHAVIOUR [None]
  - COMPULSIONS [None]
  - PANIC ATTACK [None]
  - SOCIAL AVOIDANT BEHAVIOUR [None]
  - EATING DISORDER [None]
  - APATHY [None]
